FAERS Safety Report 20602669 (Version 2)
Quarter: 2022Q2

REPORT INFORMATION
  Report Type: Spontaneous
  Country: JP (occurrence: JP)
  Receive Date: 20220316
  Receipt Date: 20220404
  Transmission Date: 20220720
  Serious: Yes (Hospitalization, Other)
  Sender: FDA-Public Use
  Company Number: JP-TAKEDA-2022TJP009001

PATIENT
  Age: 66 Year
  Sex: Male
  Weight: 43 kg

DRUGS (14)
  1. CABOMETYX [Suspect]
     Active Substance: CABOZANTINIB S-MALATE
     Indication: Hepatocellular carcinoma
     Dosage: 40 MG, QD
     Route: 048
     Dates: start: 20220105, end: 20220115
  2. NEXIUM [Concomitant]
     Active Substance: ESOMEPRAZOLE MAGNESIUM
     Indication: Portal hypertensive gastropathy
     Dosage: 20 MILLIGRAM, QD
     Route: 048
     Dates: start: 20210830
  3. AMLODIPINE [Concomitant]
     Active Substance: AMLODIPINE BESYLATE
     Indication: Hypertension
     Dosage: 5 MILLIGRAM, QD
     Route: 048
     Dates: start: 20210921
  4. FUROSEMIDE [Concomitant]
     Active Substance: FUROSEMIDE
     Dosage: 20 MILLIGRAM, QD
     Route: 048
     Dates: start: 20211203
  5. FUROSEMIDE [Concomitant]
     Active Substance: FUROSEMIDE
     Indication: Oedema peripheral
  6. SPIRONOLACTONE [Concomitant]
     Active Substance: SPIRONOLACTONE
     Indication: Oedema peripheral
     Dosage: 25 MILLIGRAM, QD
     Route: 048
     Dates: start: 20211209
  7. SPIRONOLACTONE [Concomitant]
     Active Substance: SPIRONOLACTONE
     Indication: Oedema peripheral
  8. URSODIOL [Concomitant]
     Active Substance: URSODIOL
     Indication: Cirrhosis alcoholic
     Dosage: 200 MILLIGRAM, TID
     Route: 048
     Dates: start: 20210830
  9. MIYA-BM [Concomitant]
     Active Substance: CLOSTRIDIUM BUTYRICUM SPORES STRAIN M-55
     Indication: Diarrhoea
     Dosage: UNK, TID
     Route: 048
     Dates: start: 20210920
  10. LICKLE [Concomitant]
     Active Substance: ISOLEUCINE\LEUCINE\VALINE
     Indication: Hypoalbuminaemia
     Dosage: UNK UNK, TID
     Route: 048
     Dates: start: 20210907
  11. LEVOCARNITINE [Concomitant]
     Active Substance: LEVOCARNITINE
     Indication: Carnitine decreased
     Dosage: 1000 MILLIGRAM, TID
     Route: 048
     Dates: start: 20210920
  12. FEXOFENADINE HYDROCHLORIDE [Concomitant]
     Active Substance: FEXOFENADINE HYDROCHLORIDE
     Indication: Pruritus
     Dosage: 60 MILLIGRAM, BID
     Route: 048
     Dates: start: 20211108
  13. FEXOFENADINE HYDROCHLORIDE [Concomitant]
     Active Substance: FEXOFENADINE HYDROCHLORIDE
     Indication: Pruritus
  14. ACETAMINOPHEN\TRAMADOL HYDROCHLORIDE [Concomitant]
     Active Substance: ACETAMINOPHEN\TRAMADOL HYDROCHLORIDE
     Indication: Abdominal pain
     Dosage: UNK UNK, QID
     Route: 048
     Dates: start: 20211214

REACTIONS (3)
  - Hepatic failure [Not Recovered/Not Resolved]
  - Ascites [Not Recovered/Not Resolved]
  - Condition aggravated [Not Recovered/Not Resolved]

NARRATIVE: CASE EVENT DATE: 20220115
